FAERS Safety Report 7096558-7 (Version None)
Quarter: 2010Q4

REPORT INFORMATION
  Report Type: 
  Country: None (occurrence: None)
  Receive Date: 20101111
  Receipt Date: 20101102
  Transmission Date: 20110411
  Serious: Yes (Congenital Anomaly)
  Sender: FDA-Public Use
  Company Number: B0679517A

PATIENT

DRUGS (13)
  1. CHLORHEXIDINE [Suspect]
     Dates: start: 20090309, end: 20090420
  2. AZATHIOPRINE [Suspect]
     Indication: SYSTEMIC LUPUS ERYTHEMATOSUS
     Dosage: 50MG PER DAY
     Dates: start: 20090309
  3. MUPIROCIN [Suspect]
     Dates: start: 20090309, end: 20090420
  4. PREDNISOLONE [Suspect]
     Dates: start: 20090309
  5. PARACETAMOL [Suspect]
     Dates: start: 20090309, end: 20090420
  6. HYDROXYCHLOROQUINE [Suspect]
     Indication: SYSTEMIC LUPUS ERYTHEMATOSUS
     Dosage: 200MG PER DAY
     Dates: start: 20090318
  7. METHYLPREDNISOLONE [Suspect]
  8. ALENDRONIC ACID [Suspect]
     Indication: SYSTEMIC LUPUS ERYTHEMATOSUS
     Dosage: 70MG PER DAY
  9. SENNA [Suspect]
     Dates: start: 20090309, end: 20090420
  10. LACTULOSE [Suspect]
     Dates: start: 20090309, end: 20090420
  11. SIMPLE LINCTUS [Suspect]
     Dates: start: 20090309, end: 20090420
  12. ASPIRIN [Concomitant]
  13. FOLIC ACID [Concomitant]

REACTIONS (3)
  - CLEFT LIP AND PALATE [None]
  - MATERNAL DRUGS AFFECTING FOETUS [None]
  - TERATOGENICITY [None]
